FAERS Safety Report 24711587 (Version 1)
Quarter: 2024Q4

REPORT INFORMATION
  Report Type: Report from Study
  Country: CA (occurrence: CA)
  Receive Date: 20241209
  Receipt Date: 20241209
  Transmission Date: 20250114
  Serious: Yes (Other)
  Sender: PFIZER
  Company Number: CA-PFIZER INC-202400317658

PATIENT
  Age: 72 Year
  Sex: Female

DRUGS (2)
  1. CARBOPLATIN [Suspect]
     Active Substance: CARBOPLATIN
     Dosage: UNK
     Route: 065
  2. DOSTARLIMAB [Suspect]
     Active Substance: DOSTARLIMAB
     Indication: Endometrial cancer
     Dosage: 500 MG 1 EVERY 3 WEEKS
     Route: 065

REACTIONS (3)
  - Depressed level of consciousness [Recovered/Resolved]
  - Fatigue [Recovered/Resolved]
  - Hypotension [Recovered/Resolved]
